FAERS Safety Report 6187220-3 (Version None)
Quarter: 2009Q2

REPORT INFORMATION
  Report Type: 
  Country: None (occurrence: None)
  Receive Date: 20090512
  Receipt Date: 20090430
  Transmission Date: 20091009
  Serious: Yes (Other)
  Sender: FDA-Public Use
  Company Number: PHHY2009DE14779

PATIENT
  Sex: Female

DRUGS (1)
  1. FEMARA [Suspect]
     Indication: BREAST CANCER
     Dosage: 2.5 MG, QD
     Route: 048
     Dates: start: 20080908, end: 20090120

REACTIONS (9)
  - ARTHRALGIA [None]
  - CARPAL TUNNEL SYNDROME [None]
  - DEPRESSION [None]
  - DYSURIA [None]
  - GENERAL PHYSICAL HEALTH DETERIORATION [None]
  - HYPOAESTHESIA [None]
  - MUSCULAR WEAKNESS [None]
  - SLEEP DISORDER [None]
  - VISUAL IMPAIRMENT [None]
